FAERS Safety Report 7038524-3 (Version None)
Quarter: 2010Q4

REPORT INFORMATION
  Report Type: 
  Country: None (occurrence: None)
  Receive Date: 20101011
  Receipt Date: 20100127
  Transmission Date: 20110411
  Serious: No
  Sender: FDA-Public Use
  Company Number: US-PFIZER INC-2010013028

PATIENT
  Sex: Male
  Weight: 90.7 kg

DRUGS (7)
  1. NEURONTIN [Suspect]
     Indication: NEUROPATHY PERIPHERAL
     Dosage: 600 MG, 3X/DAY
     Dates: start: 20030101
  2. GABAPENTIN [Suspect]
     Indication: NEUROPATHY PERIPHERAL
     Dosage: UNK
     Dates: start: 20080901, end: 20081001
  3. LIPITOR [Concomitant]
     Dosage: 20 MG, 1X/DAY
  4. PREDNISONE [Concomitant]
     Dosage: 12 MG/DAY
  5. ZOLPIDEM TARTRATE [Concomitant]
     Dosage: 12 MG/DAY
  6. METOPROLOL [Concomitant]
     Dosage: 50 MG/DAY
  7. CYMBALTA [Concomitant]
     Dosage: 60 MG/DAY

REACTIONS (2)
  - DRUG INEFFECTIVE [None]
  - MALAISE [None]
